FAERS Safety Report 6310989-1 (Version None)
Quarter: 2009Q3

REPORT INFORMATION
  Report Type: 
  Country: None (occurrence: None)
  Receive Date: 20090817
  Receipt Date: 20090806
  Transmission Date: 20100115
  Serious: Yes (Hospitalization)
  Sender: FDA-Public Use
  Company Number: US-BIOGENIDEC-2009BI006015

PATIENT
  Age: 55 Year
  Sex: Female

DRUGS (3)
  1. AVONEX [Suspect]
     Indication: MULTIPLE SCLEROSIS
     Route: 030
     Dates: start: 20051024, end: 20070316
  2. AVONEX [Suspect]
     Route: 030
     Dates: start: 20080221
  3. AVONEX [Suspect]
     Route: 030
     Dates: start: 20000401, end: 20041201

REACTIONS (2)
  - CARDIAC DISORDER [None]
  - FATIGUE [None]
